FAERS Safety Report 6918409-0 (Version None)
Quarter: 2010Q3

REPORT INFORMATION
  Report Type: 
  Country: None (occurrence: None)
  Receive Date: 20100811
  Receipt Date: 20100803
  Transmission Date: 20110219
  Serious: No
  Sender: FDA-Public Use
  Company Number: US-BIOGENIDEC-2010BI027226

PATIENT
  Age: 55 Year
  Sex: Male

DRUGS (1)
  1. TYSABRI [Suspect]
     Indication: MULTIPLE SCLEROSIS
     Route: 042
     Dates: start: 20100709

REACTIONS (5)
  - DIARRHOEA [None]
  - FATIGUE [None]
  - LOSS OF CONTROL OF LEGS [None]
  - PAIN IN EXTREMITY [None]
  - SENSATION OF HEAVINESS [None]
